FAERS Safety Report 18644006 (Version 1)
Quarter: 2020Q4

REPORT INFORMATION
  Report Type: Report from Study
  Country: PH (occurrence: PH)
  Receive Date: 20201221
  Receipt Date: 20201221
  Transmission Date: 20210114
  Serious: Yes (Death)
  Sender: FDA-Public Use
  Company Number: NVSC2020PH338357

PATIENT

DRUGS (1)
  1. ENTRESTO [Suspect]
     Active Substance: SACUBITRIL\VALSARTAN
     Indication: PRODUCT USED FOR UNKNOWN INDICATION
     Dosage: UNK
     Route: 065

REACTIONS (6)
  - Cardiac failure congestive [Fatal]
  - Pulmonary hypertension [Fatal]
  - Acute kidney injury [Fatal]
  - Chronic kidney disease [Fatal]
  - Cardiogenic shock [Fatal]
  - Diabetes mellitus [Fatal]
